FAERS Safety Report 16465071 (Version 1)
Quarter: 2019Q2

REPORT INFORMATION
  Report Type: Spontaneous
  Country: CN (occurrence: CN)
  Receive Date: 20190621
  Receipt Date: 20190621
  Transmission Date: 20190711
  Serious: Yes (Other)
  Sender: FDA-Public Use
  Company Number: CN-BAYER-2019-098948

PATIENT
  Sex: Female

DRUGS (1)
  1. CLARITYNE 10 MG [Suspect]
     Active Substance: LORATADINE
     Dosage: UNK
     Route: 048
     Dates: start: 201905

REACTIONS (2)
  - Abortion [None]
  - Maternal exposure during pregnancy [None]

NARRATIVE: CASE EVENT DATE: 2019
